FAERS Safety Report 5765276-7 (Version None)
Quarter: 2008Q2

REPORT INFORMATION
  Report Type: 
  Country: None (occurrence: None)
  Receive Date: 20080602
  Receipt Date: 20080121
  Transmission Date: 20081010
  Serious: No
  Sender: FDA-Public Use
  Company Number: PHEH2008US01094

PATIENT
  Sex: Female

DRUGS (1)
  1. TEKTURNA [Suspect]
     Indication: HYPERTENSION
     Dosage: 150 MG

REACTIONS (5)
  - CONSTIPATION [None]
  - COUGH [None]
  - DIARRHOEA [None]
  - INSOMNIA [None]
  - RASH [None]
